FAERS Safety Report 10582529 (Version 1)
Quarter: 2014Q4

REPORT INFORMATION
  Report Type: Spontaneous
  Country: JP (occurrence: JP)
  Receive Date: 20141113
  Receipt Date: 20141113
  Transmission Date: 20150529
  Serious: Yes (Other)
  Sender: FDA-Public Use
  Company Number: JP-BAUSCH-BL-2014-008260

PATIENT
  Age: 60 Year
  Sex: Male

DRUGS (4)
  1. FLUOROURACIL. [Suspect]
     Active Substance: FLUOROURACIL
     Indication: HYPOPHARYNGEAL CANCER
     Dates: start: 2012
  2. CISPLATIN. [Suspect]
     Active Substance: CISPLATIN
     Indication: HYPOPHARYNGEAL CANCER
     Dates: start: 2012
  3. DOCETAXEL. [Suspect]
     Active Substance: DOCETAXEL
     Indication: HYPOPHARYNGEAL CANCER
     Dates: start: 2012
  4. CARBOPLATIN. [Suspect]
     Active Substance: CARBOPLATIN
     Indication: HYPOPHARYNGEAL CANCER

REACTIONS (5)
  - Febrile neutropenia [Unknown]
  - Renal impairment [Recovering/Resolving]
  - Disseminated intravascular coagulation [Recovered/Resolved]
  - Thrombocytopenia [Unknown]
  - Muscle abscess [Recovering/Resolving]

NARRATIVE: CASE EVENT DATE: 2012
